FAERS Safety Report 14663635 (Version 7)
Quarter: 2018Q2

REPORT INFORMATION
  Report Type: Report from Study
  Country: KR (occurrence: KR)
  Receive Date: 20180321
  Receipt Date: 20180425
  Transmission Date: 20180711
  Serious: Yes (Hospitalization)
  Sender: FDA-Public Use
  Company Number: KR-ROCHE-2087893

PATIENT
  Age: 78 Year
  Sex: Male
  Weight: 61 kg

DRUGS (16)
  1. ATEZOLIZUMAB. [Suspect]
     Active Substance: ATEZOLIZUMAB
     Indication: MALIGNANT MELANOMA
     Dosage: DATE OF MOST RECENT DOSE OF ATEZOLIZUMAB (840 MG) PRIOR TO THE ADVERSE EVENT: 26/FEB/2018,?MOST RECE
     Route: 042
     Dates: start: 20180226
  2. DILATREND [Concomitant]
     Active Substance: CARVEDILOL
     Indication: HYPERTENSION
     Route: 048
     Dates: start: 2016
  3. LOPERAMIDE [Concomitant]
     Active Substance: LOPERAMIDE
     Indication: DIARRHOEA
     Route: 048
     Dates: start: 20180307, end: 20180312
  4. SODIUM BICARBONATE. [Concomitant]
     Active Substance: SODIUM BICARBONATE
     Indication: STOMATITIS
     Route: 048
     Dates: start: 20180313
  5. FURTMAN [Concomitant]
     Route: 013
     Dates: start: 20180313, end: 20180313
  6. TANTUM (SOUTH KOREA) [Concomitant]
     Indication: RETINOPATHY
     Route: 047
     Dates: start: 20170307
  7. TANTUM (SOUTH KOREA) [Concomitant]
     Indication: STOMATITIS
     Route: 048
     Dates: start: 20180313
  8. KLENZO [Concomitant]
     Indication: STOMATITIS
     Route: 048
     Dates: start: 20180313
  9. ENTELON [Concomitant]
     Indication: HYPERTENSION
     Route: 048
     Dates: start: 2016, end: 20180228
  10. COBIMETINIB. [Suspect]
     Active Substance: COBIMETINIB
     Indication: MALIGNANT MELANOMA
     Dosage: DATE OF MOST RECENT DOSE OF COBIMETINIB (60 MG) PRIOR TO ADVERSE EVENT: 06/MAR/2018
     Route: 048
     Dates: start: 20180226
  11. FREAMINE III NOS [Concomitant]
     Active Substance: AMINO ACIDS
     Route: 042
     Dates: start: 20180307, end: 20180307
  12. COFREL [Concomitant]
     Indication: COUGH
     Route: 048
     Dates: start: 20180313, end: 20180318
  13. LACTICARE ZEMAGIS [Concomitant]
     Indication: RASH
     Route: 061
     Dates: start: 20180314
  14. COBIMETINIB. [Suspect]
     Active Substance: COBIMETINIB
     Route: 048
     Dates: start: 20180316
  15. AMOSARTAN [Concomitant]
     Indication: HYPERTENSION
     Route: 048
     Dates: start: 2016
  16. LIDOMEX [Concomitant]
     Active Substance: PREDNISOLONE VALERATE ACETATE
     Route: 061
     Dates: start: 20180315

REACTIONS (2)
  - Retinopathy [Recovered/Resolved]
  - Asthenia [Recovered/Resolved]

NARRATIVE: CASE EVENT DATE: 20180301
